FAERS Safety Report 18734836 (Version 2)
Quarter: 2021Q1

REPORT INFORMATION
  Report Type: Spontaneous
  Country: GB (occurrence: GB)
  Receive Date: 20210113
  Receipt Date: 20210128
  Transmission Date: 20210419
  Serious: Yes (Other)
  Sender: FDA-Public Use
  Company Number: GB-ACCORD-214512

PATIENT
  Age: 49 Year
  Sex: Female
  Weight: 77.6 kg

DRUGS (1)
  1. MYCOPHENOLIC ACID. [Suspect]
     Active Substance: MYCOPHENOLIC ACID
     Indication: MYELITIS TRANSVERSE
     Dosage: TWO TIMES PER DAY
     Route: 048
     Dates: start: 20190902, end: 20191010

REACTIONS (2)
  - Off label use [Unknown]
  - Drug-induced liver injury [Recovered/Resolved]

NARRATIVE: CASE EVENT DATE: 20190930
